FAERS Safety Report 22042388 (Version 1)
Quarter: 2023Q1

REPORT INFORMATION
  Report Type: Spontaneous
  Country: US (occurrence: US)
  Receive Date: 20230228
  Receipt Date: 20230228
  Transmission Date: 20230417
  Serious: Yes (Hospitalization)
  Sender: FDA-Public Use
  Company Number: US-PROCTER+GAMBLE-PH23001728

PATIENT
  Age: 59 Year
  Sex: Female

DRUGS (3)
  1. DIPHENHYDRAMINE HYDROCHLORIDE [Suspect]
     Active Substance: DIPHENHYDRAMINE HYDROCHLORIDE
     Dosage: 2 TABLET, 4 /DAY (THREE TO FOUR TIMES PER DAY)
     Route: 048
  2. ACETAMINOPHEN [Suspect]
     Active Substance: ACETAMINOPHEN
     Dosage: 2 TABLET, 4 /DAY (G, THREE TO FOUR TIMES PER DAY)
     Route: 048
  3. HERBALS\MITRAGYNINE [Concomitant]
     Active Substance: HERBALS\MITRAGYNINE
     Dosage: UNK

REACTIONS (41)
  - Metabolic acidosis [Recovered/Resolved]
  - Dyspnoea [Unknown]
  - Pollakiuria [Unknown]
  - Hypophagia [Unknown]
  - Pain [Unknown]
  - Fall [Unknown]
  - Pyroglutamic acidosis [Recovered/Resolved]
  - Urinary tract infection [Unknown]
  - Constipation [Unknown]
  - Depression [Unknown]
  - Pain in extremity [Unknown]
  - Peripheral swelling [Unknown]
  - Decreased appetite [Unknown]
  - Dysuria [Unknown]
  - Abdominal pain lower [Unknown]
  - Hypertension [Unknown]
  - Dry skin [Unknown]
  - Skin exfoliation [Unknown]
  - Dry mouth [Unknown]
  - Resting tremor [Unknown]
  - Non-pitting oedema [Unknown]
  - Abdominal tenderness [Unknown]
  - Muscular weakness [Unknown]
  - Hypertransaminasaemia [Unknown]
  - Blood chloride increased [Unknown]
  - Blood bicarbonate decreased [Unknown]
  - Blood glucose increased [Unknown]
  - Blood albumin decreased [Unknown]
  - Blood creatinine increased [Recovering/Resolving]
  - Aspartate aminotransferase increased [Unknown]
  - Blood triglycerides increased [Unknown]
  - White blood cell count increased [Unknown]
  - Haemoglobin decreased [Unknown]
  - Blood lactic acid increased [Recovering/Resolving]
  - Respiratory rate increased [Unknown]
  - Blood pressure increased [Unknown]
  - Protein urine present [Unknown]
  - Blood urine present [Unknown]
  - Nitrite urine present [Unknown]
  - Urine leukocyte esterase [Unknown]
  - Overdose [Unknown]
